FAERS Safety Report 9547089 (Version 1)
Quarter: 2013Q3

REPORT INFORMATION
  Report Type: Spontaneous
  Country: US (occurrence: None)
  Receive Date: 20130920
  Receipt Date: 20130920
  Transmission Date: 20140515
  Serious: Yes (Other)
  Sender: FDA-Public Use
  Company Number: 2013-US-000176

PATIENT
  Age: 42 Year
  Sex: Female

DRUGS (1)
  1. XYREM [Suspect]
     Indication: SOMNOLENCE
     Route: 048
     Dates: start: 20110322

REACTIONS (1)
  - Surgery [None]
